FAERS Safety Report 18555535 (Version 1)
Quarter: 2020Q4

REPORT INFORMATION
  Report Type: Spontaneous
  Country: US (occurrence: US)
  Receive Date: 20201127
  Receipt Date: 20201127
  Transmission Date: 20210114
  Serious: Yes (Other)
  Sender: FDA-Public Use
  Company Number: US-NOVOPROD-733924

PATIENT
  Age: 78 Year
  Sex: Female

DRUGS (1)
  1. NOVOLIN N [Suspect]
     Active Substance: INSULIN HUMAN
     Indication: DIABETES MELLITUS
     Dosage: UNK
     Route: 058
     Dates: start: 2019, end: 2019

REACTIONS (3)
  - Glycosylated haemoglobin increased [Unknown]
  - Intentional dose omission [Unknown]
  - Blood glucose increased [Unknown]
